FAERS Safety Report 6005032-8 (Version None)
Quarter: 2008Q4

REPORT INFORMATION
  Report Type: 
  Country: None (occurrence: None)
  Receive Date: 20081216
  Receipt Date: 20080908
  Transmission Date: 20090506
  Serious: No
  Sender: FDA-Public Use
  Company Number: US-BAUSCH-2008BL003878

PATIENT
  Age: 40 Year
  Sex: Female

DRUGS (1)
  1. NEOMYCIN AND POLYMXIN B SULFATES AND HYDROCORTISONE [Suspect]
     Indication: EAR INFECTION
     Route: 001
     Dates: start: 20080904

REACTIONS (6)
  - EAR PAIN [None]
  - HEADACHE [None]
  - PAIN [None]
  - RHINORRHOEA [None]
  - SINUS HEADACHE [None]
  - THROAT IRRITATION [None]
